FAERS Safety Report 13517427 (Version 1)
Quarter: 2017Q2

REPORT INFORMATION
  Report Type: Spontaneous
  Country: US (occurrence: US)
  Receive Date: 20170505
  Receipt Date: 20170505
  Transmission Date: 20170830
  Serious: Yes (Other)
  Sender: FDA-Public Use
  Company Number: None

PATIENT
  Age: 56 Year
  Sex: Female

DRUGS (3)
  1. NUVIGIL [Concomitant]
     Active Substance: ARMODAFINIL
  2. ARMOUR THYROID [Concomitant]
     Active Substance: THYROID, PORCINE
  3. DULOXETINE. [Suspect]
     Active Substance: DULOXETINE
     Indication: MAJOR DEPRESSION
     Dosage: TI AM , 30MG T GHS
     Route: 048
     Dates: start: 20150316, end: 20160125

REACTIONS (7)
  - Dizziness [None]
  - Anxiety [None]
  - Migraine [None]
  - Drug intolerance [None]
  - Feeling jittery [None]
  - Headache [None]
  - Product substitution issue [None]

NARRATIVE: CASE EVENT DATE: 20150316
